FAERS Safety Report 15651159 (Version 2)
Quarter: 2018Q4

REPORT INFORMATION
  Report Type: Spontaneous
  Country: US (occurrence: US)
  Receive Date: 20181123
  Receipt Date: 20181206
  Transmission Date: 20190205
  Serious: No
  Sender: FDA-Public Use
  Company Number: US-HORIZON-KRY-0375-2018

PATIENT
  Age: 88 Year
  Sex: Female

DRUGS (1)
  1. KRYSTEXXA [Suspect]
     Active Substance: PEGLOTICASE
     Indication: GOUT
     Dosage: EVERY 2 WEEKS

REACTIONS (8)
  - Vomiting [Unknown]
  - Diarrhoea [Unknown]
  - Erythema [Unknown]
  - Urine odour abnormal [Recovered/Resolved]
  - Gout [Not Recovered/Not Resolved]
  - Urticaria [Unknown]
  - Pruritus [Unknown]
  - Therapeutic response decreased [Unknown]
